FAERS Safety Report 24263027 (Version 1)
Quarter: 2024Q3

REPORT INFORMATION
  Report Type: Spontaneous
  Country: US (occurrence: None)
  Receive Date: 20240827
  Receipt Date: 20240827
  Transmission Date: 20241016
  Serious: Yes (Other)
  Sender: Public
  Company Number: None

PATIENT
  Age: 80 Year
  Sex: Female
  Weight: 50.35 kg

DRUGS (1)
  1. ATROPINE [Suspect]
     Active Substance: ATROPINE
     Dosage: FREQUENCY : DAILY;?
     Route: 048
     Dates: start: 20240113, end: 20240116

REACTIONS (3)
  - Delirium [None]
  - Dry mouth [None]
  - Dysphagia [None]

NARRATIVE: CASE EVENT DATE: 20240116
